FAERS Safety Report 4267610-6 (Version None)
Quarter: 2004Q1

REPORT INFORMATION
  Report Type: 
  Country: None (occurrence: None)
  Receive Date: 20040109
  Receipt Date: 20031008
  Transmission Date: 20041129
  Serious: No
  Sender: FDA-Public Use
  Company Number: US-GLAXOSMITHKLINE-A0430084A

PATIENT
  Age: 54 Year
  Sex: Female
  Weight: 81.7 kg

DRUGS (4)
  1. WELLBUTRIN [Suspect]
     Indication: DEPRESSION
     Route: 048
  2. PROZAC [Concomitant]
  3. ZOLOFT [Concomitant]
  4. TCA [Concomitant]

REACTIONS (1)
  - DRUG INEFFECTIVE [None]
